FAERS Safety Report 4279659-8 (Version None)
Quarter: 2004Q1

REPORT INFORMATION
  Report Type: 
  Country: None (occurrence: None)
  Receive Date: 20040123
  Receipt Date: 20040108
  Transmission Date: 20041129
  Serious: Yes (Other)
  Sender: FDA-Public Use
  Company Number: 2004003816

PATIENT

DRUGS (5)
  1. LIPITOR [Suspect]
     Indication: ILL-DEFINED DISORDER
     Dosage: ORAL
     Route: 048
  2. DIGITALIS (DIGITALIS) [Concomitant]
  3. NIFEDIPINE [Concomitant]
  4. TRICHLORMETHIAZINE (TRICHLORMETHIAZINE) [Concomitant]
  5. ATENOLOL [Concomitant]

REACTIONS (2)
  - GLOSSODYNIA [None]
  - TONGUE DISCOLOURATION [None]
